FAERS Safety Report 11872504 (Version 1)
Quarter: 2015Q4

REPORT INFORMATION
  Report Type: Spontaneous
  Country: US (occurrence: None)
  Receive Date: 20151224
  Receipt Date: 20151224
  Transmission Date: 20160305
  Serious: Yes (Disabling)
  Sender: FDA-Public Use
  Company Number: None

PATIENT
  Age: 50 Year
  Sex: Female
  Weight: 102.51 kg

DRUGS (8)
  1. LYRICA [Concomitant]
     Active Substance: PREGABALIN
  2. MAXIMUM D3 [Concomitant]
     Active Substance: CHOLECALCIFEROL
  3. LOW DOSE NALTREXONE 4.5 MG WELLNESS CENTER COMPOUND PHARMACY [Suspect]
     Active Substance: NALTREXONE
     Indication: FIBROMYALGIA
     Dosage: 4.5/1 PILL
     Route: 048
  4. TURMERIC [Concomitant]
     Active Substance: TURMERIC
  5. VOLTAREN PILLS [Concomitant]
  6. LIDOCAINE. [Concomitant]
     Active Substance: LIDOCAINE
  7. PROTONIX [Concomitant]
     Active Substance: PANTOPRAZOLE SODIUM
  8. DHEA [Concomitant]
     Active Substance: PRASTERONE

REACTIONS (2)
  - Tremor [None]
  - Paraesthesia [None]

NARRATIVE: CASE EVENT DATE: 20131201
